FAERS Safety Report 8349482-3 (Version None)
Quarter: 2012Q2

REPORT INFORMATION
  Report Type: 
  Country: None (occurrence: None)
  Receive Date: 20120510
  Receipt Date: 20100915
  Transmission Date: 20120825
  Serious: No
  Sender: FDA-Public Use
  Company Number: US-TEVA-2010004938

PATIENT
  Sex: Male
  Weight: 118.04 kg

DRUGS (10)
  1. NUVIGIL [Suspect]
     Indication: SLEEP APNOEA SYNDROME
  2. ATIVAN [Concomitant]
     Dates: start: 20100301
  3. MOTRIN [Concomitant]
     Dates: start: 20000101
  4. FLEXERIL [Concomitant]
     Dates: start: 20000101
  5. FENTANYL CITRATE [Concomitant]
     Route: 061
     Dates: start: 20070101
  6. FENTANYL CITRATE [Concomitant]
     Indication: COMPLEX REGIONAL PAIN SYNDROME
     Dosage: 1800 MICROGRAM;
     Route: 002
     Dates: start: 20070101, end: 20100101
  7. AVINZA [Concomitant]
     Dates: start: 20100301
  8. LIDODERM [Concomitant]
     Dates: start: 20030101
  9. NUVIGIL [Suspect]
     Indication: COMPLEX REGIONAL PAIN SYNDROME
     Route: 048
     Dates: start: 20090101
  10. NUCYNCA [Concomitant]
     Dates: start: 20100301

REACTIONS (3)
  - DRUG INEFFECTIVE [None]
  - INSOMNIA [None]
  - DRUG PRESCRIBING ERROR [None]
